FAERS Safety Report 5904328-5 (Version None)
Quarter: 2008Q3

REPORT INFORMATION
  Report Type: 
  Country: None (occurrence: None)
  Receive Date: 20080930
  Receipt Date: 20080930
  Transmission Date: 20090109
  Serious: Yes (Other)
  Sender: FDA-Public Use
  Company Number: None

PATIENT
  Age: 15 Year
  Sex: Male
  Weight: 95.2554 kg

DRUGS (2)
  1. HYDROCODONE BITARTRATE + ACETAMINOPHEN [Suspect]
     Indication: PAIN
     Dosage: 1 TABLET 4-6 HOURS PO, 1 DOSE
     Route: 048
     Dates: start: 20080903, end: 20080903
  2. PROPOXYPHENE HCL AND ACETAMINOPHEN [Suspect]
     Indication: PAIN
     Dosage: 1-2 TABLETS 4 HOURS PO, 2 DOSES 6 HRS APART
     Route: 048
     Dates: start: 20080904, end: 20080904

REACTIONS (1)
  - DYSPNOEA [None]
